FAERS Safety Report 14290601 (Version 1)
Quarter: 2017Q4

REPORT INFORMATION
  Report Type: Spontaneous
  Country: US (occurrence: US)
  Receive Date: 20171215
  Receipt Date: 20171215
  Transmission Date: 20180321
  Serious: Yes (Hospitalization)
  Sender: FDA-Public Use
  Company Number: US-JNJFOC-20171206350

PATIENT
  Sex: Male
  Weight: 86.18 kg

DRUGS (6)
  1. LORAZEPAM. [Concomitant]
     Active Substance: LORAZEPAM
     Indication: PRODUCT USED FOR UNKNOWN INDICATION
     Route: 065
     Dates: start: 201705
  2. DEPAKOTE [Concomitant]
     Active Substance: DIVALPROEX SODIUM
     Indication: PRODUCT USED FOR UNKNOWN INDICATION
     Route: 065
     Dates: start: 201705
  3. FLUOXETINE [Concomitant]
     Active Substance: FLUOXETINE HYDROCHLORIDE
     Indication: PRODUCT USED FOR UNKNOWN INDICATION
     Route: 065
     Dates: start: 201705
  4. INVEGA [Suspect]
     Active Substance: PALIPERIDONE
     Indication: PRODUCT USED FOR UNKNOWN INDICATION
     Route: 048
  5. INVEGA SUSTENNA [Suspect]
     Active Substance: PALIPERIDONE PALMITATE
     Indication: MENTAL DISORDER
     Route: 030
     Dates: start: 20170829
  6. BENZOTROPINE [Concomitant]
     Active Substance: BENZTROPINE
     Indication: PRODUCT USED FOR UNKNOWN INDICATION
     Route: 065
     Dates: start: 201705

REACTIONS (17)
  - Ammonia abnormal [Unknown]
  - Cough [Unknown]
  - Erythema [Unknown]
  - Hyperphagia [Unknown]
  - Nausea [Unknown]
  - Feeling abnormal [Unknown]
  - Sensory loss [Unknown]
  - Feeling hot [Unknown]
  - Hypoaesthesia [Unknown]
  - Drug effect decreased [Unknown]
  - Mental disorder [Unknown]
  - Treatment noncompliance [Unknown]
  - Elderly [Unknown]
  - Malaise [Unknown]
  - Gynaecomastia [Unknown]
  - Weight increased [Unknown]
  - Impaired self-care [Unknown]

NARRATIVE: CASE EVENT DATE: 2017
